FAERS Safety Report 4942918-7 (Version None)
Quarter: 2006Q1

REPORT INFORMATION
  Report Type: 
  Country: None (occurrence: None)
  Receive Date: 20060309
  Receipt Date: 20051107
  Transmission Date: 20060701
  Serious: Yes (Death)
  Sender: FDA-Public Use
  Company Number: 2005-02709

PATIENT
  Age: 65 Year
  Sex: Male

DRUGS (4)
  1. VELCADE [Suspect]
     Indication: MULTIPLE MYELOMA
     Dosage: 2.3 MG, INTRAVENOUS
     Route: 042
     Dates: start: 20050124, end: 20050414
  2. ZOMETA [Concomitant]
  3. DEXAMETHASONE TAB [Concomitant]
  4. NEXIUM [Concomitant]

REACTIONS (2)
  - HEPATITIS [None]
  - PYREXIA [None]
